FAERS Safety Report 4743582-2 (Version None)
Quarter: 2005Q3

REPORT INFORMATION
  Report Type: 
  Country: None (occurrence: None)
  Receive Date: 20050810
  Receipt Date: 20050810
  Transmission Date: 20060218
  Serious: Yes (Hospitalization)
  Sender: FDA-Public Use
  Company Number: None

PATIENT
  Age: 78 Year
  Sex: Male
  Weight: 63.6 kg

DRUGS (12)
  1. LISINOPRIL [Suspect]
     Indication: HYPERTENSION
     Dosage: 5MG DAILY
  2. ISOSORBIDE MONITONITRATE [Suspect]
     Dosage: 30 MG DAILY
  3. ATENOLOL [Suspect]
     Dosage: 12.5MG DAILY
  4. FOLIC ACID [Concomitant]
  5. ALBUTEROL NEB [Concomitant]
  6. IPRATROPIUM BROMIDE [Concomitant]
  7. SULFAMETHOXAZOLE 800MG/TRIMETHOPRIM [Concomitant]
  8. CODEINE 30MG/APAP [Concomitant]
  9. OMEPRAZOLE SA [Concomitant]
  10. GATIFLOXACIN [Concomitant]
  11. SIMVASTATIN [Concomitant]
  12. KETOCONAZOLE [Concomitant]

REACTIONS (8)
  - BALANCE DISORDER [None]
  - BLISTER INFECTED [None]
  - CHILLS [None]
  - NIGHT SWEATS [None]
  - ORTHOSTATIC HYPOTENSION [None]
  - PYREXIA [None]
  - SYNCOPE [None]
  - TUNNEL VISION [None]
